FAERS Safety Report 6969171-7 (Version None)
Quarter: 2010Q3

REPORT INFORMATION
  Report Type: 
  Country: None (occurrence: None)
  Receive Date: 20100907
  Receipt Date: 20100827
  Transmission Date: 20110219
  Serious: Yes (Other)
  Sender: FDA-Public Use
  Company Number: PHHY2010CA44167

PATIENT
  Sex: Female

DRUGS (1)
  1. ZOLEDRONIC [Suspect]
     Indication: OSTEOPOROSIS
     Dosage: 5 MG, ONCE A YEAR
     Route: 042
     Dates: start: 20090902

REACTIONS (6)
  - ARTHRALGIA [None]
  - MYALGIA [None]
  - OSTEOMYELITIS [None]
  - PERIODONTITIS [None]
  - TOOTH EXTRACTION [None]
  - TOOTH LOSS [None]
